FAERS Safety Report 17578338 (Version 1)
Quarter: 2020Q1

REPORT INFORMATION
  Report Type: Report from Study
  Country: IT (occurrence: IT)
  Receive Date: 20200324
  Receipt Date: 20200324
  Transmission Date: 20200409
  Serious: Yes (Hospitalization)
  Sender: FDA-Public Use
  Company Number: IT-MYLANLABS-2020M1030914

PATIENT
  Age: 59 Year
  Sex: Male

DRUGS (1)
  1. ZOLPIDEM [Suspect]
     Active Substance: ZOLPIDEM TARTRATE
     Indication: INSOMNIA
     Dosage: 600 MILLIGRAM, TOTAL
     Dates: start: 20200110, end: 20200110

REACTIONS (2)
  - Labelled drug-food interaction medication error [Unknown]
  - Coma [Unknown]

NARRATIVE: CASE EVENT DATE: 20200110
